FAERS Safety Report 9062607 (Version 1)
Quarter: 2013Q1

REPORT INFORMATION
  Report Type: Report from Study
  Country: US (occurrence: US)
  Receive Date: 20130128
  Receipt Date: 20130128
  Transmission Date: 20140127
  Serious: No
  Sender: FDA-Public Use
  Company Number: US-ABBOTT-12P-163-0917246-00

PATIENT
  Age: 61 Year
  Sex: Male

DRUGS (15)
  1. HUMIRA 40 MG/0.8 ML PEN [Suspect]
     Indication: RHEUMATOID ARTHRITIS
     Dates: start: 201112
  2. COMBAGIN [Concomitant]
     Indication: PRODUCT USED FOR UNKNOWN INDICATION
     Dosage: EACH EYE TWICE DAILY
     Route: 047
  3. RESTASIS [Concomitant]
     Indication: PRODUCT USED FOR UNKNOWN INDICATION
     Dosage: EACH EYE TWICE DAILY
     Route: 047
  4. TRAVATAN Z [Concomitant]
     Indication: PRODUCT USED FOR UNKNOWN INDICATION
     Dosage: EACH EYE AT BEDTIME
     Route: 047
  5. ALENDRONATE [Concomitant]
     Indication: OSTEOPOROSIS
     Dosage: 1 TAB WEEKLY
  6. VITAMIN B COMPLEX [Concomitant]
     Indication: PRODUCT USED FOR UNKNOWN INDICATION
     Dosage: 1 TAB DAILY
  7. BUFFERIN [Concomitant]
     Indication: MUSCULOSKELETAL STIFFNESS
     Dosage: 2 TABS THREE TIMES A DAY
  8. CALCIUM CITRATE [Concomitant]
     Indication: PRODUCT USED FOR UNKNOWN INDICATION
     Dosage: DAILY
  9. FOLIC ACID [Concomitant]
     Indication: PRODUCT USED FOR UNKNOWN INDICATION
     Dosage: 1 MG DAILY
  10. GELNIQUE [Concomitant]
     Indication: URINARY INCONTINENCE
     Dosage: 1 GM DAILY TO PENIS
  11. MULTIVITAMINS [Concomitant]
     Indication: PRODUCT USED FOR UNKNOWN INDICATION
     Dosage: DAILY
  12. PRILOSEC [Concomitant]
     Indication: GASTROOESOPHAGEAL REFLUX DISEASE
     Dosage: 20 MG DAILY, OVER THE COUNTER
  13. RAPAFLO [Concomitant]
     Indication: DYSURIA
     Dosage: 8 MG DAILY
  14. TRAMADOL [Concomitant]
     Indication: ARTHRALGIA
     Dosage: UP TO 4 TABS DAILY
  15. TRIAMTERENE/HCTZ [Concomitant]
     Indication: DYSURIA
     Dosage: 75/50 MG 1/2 TAB DAILY

REACTIONS (1)
  - Visual acuity reduced [Not Recovered/Not Resolved]
